FAERS Safety Report 9235969 (Version 2)
Quarter: 2013Q2

REPORT INFORMATION
  Report Type: Spontaneous
  Country: BE (occurrence: None)
  Receive Date: 20130329
  Receipt Date: 20130405
  Transmission Date: 20140414
  Serious: Yes (Hospitalization)
  Sender: FDA-Public Use
  Company Number: 2013035187

PATIENT
  Age: 63 Year
  Sex: 0

DRUGS (2)
  1. HAEMATE P [Suspect]
     Indication: ACQUIRED VON WILLEBRAND^S DISEASE
     Dosage: 3 ADMINISTRATIONS ON SEPARATE DAYS, INTRAVENOUS
  2. PRIVIGEN [Suspect]
     Indication: ACQUIRED VON WILLEBRAND^S DISEASE
     Dosage: ONCE DURING TWO DAYS INTRAVENOUS, ADMINISTRATION DATE NOT REPORTED

REACTIONS (3)
  - Post procedural haemorrhage [None]
  - Mouth haemorrhage [None]
  - Drug ineffective for unapproved indication [None]
